FAERS Safety Report 8024500-0 (Version None)
Quarter: 2012Q1

REPORT INFORMATION
  Report Type: 
  Country: None (occurrence: None)
  Receive Date: 20120103
  Receipt Date: 20111220
  Transmission Date: 20120608
  Serious: Yes (Hospitalization, Disabling)
  Sender: FDA-Public Use
  Company Number: 2011SP059210

PATIENT
  Age: 58 Year
  Sex: Female
  Weight: 60.2 kg

DRUGS (12)
  1. TEMODAL [Suspect]
     Indication: ANAPLASTIC ASTROCYTOMA
     Dosage: 75 MG/M2;QD;PO, 150 MG/M2;QD;PO, 200 MG/M2;QD;PO, 150 MG/M2;QD;PO, 150 MG/M2;QD;PO
     Route: 048
     Dates: start: 20100410, end: 20100414
  2. TEMODAL [Suspect]
     Indication: ANAPLASTIC ASTROCYTOMA
     Dosage: 75 MG/M2;QD;PO, 150 MG/M2;QD;PO, 200 MG/M2;QD;PO, 150 MG/M2;QD;PO, 150 MG/M2;QD;PO
     Route: 048
     Dates: start: 20100215, end: 20100219
  3. TEMODAL [Suspect]
     Indication: ANAPLASTIC ASTROCYTOMA
     Dosage: 75 MG/M2;QD;PO, 150 MG/M2;QD;PO, 200 MG/M2;QD;PO, 150 MG/M2;QD;PO, 150 MG/M2;QD;PO
     Route: 048
     Dates: start: 20091101, end: 20091229
  4. TEMODAL [Suspect]
     Indication: ANAPLASTIC ASTROCYTOMA
     Dosage: 75 MG/M2;QD;PO, 150 MG/M2;QD;PO, 200 MG/M2;QD;PO, 150 MG/M2;QD;PO, 150 MG/M2;QD;PO
     Route: 048
     Dates: start: 20091003, end: 20091007
  5. TEMODAL [Suspect]
     Indication: ANAPLASTIC ASTROCYTOMA
     Dosage: 75 MG/M2;QD;PO, 150 MG/M2;QD;PO, 200 MG/M2;QD;PO, 150 MG/M2;QD;PO, 150 MG/M2;QD;PO
     Route: 048
     Dates: start: 20090723, end: 20090902
  6. HUMULIN R [Concomitant]
  7. SULFAMETHOXAZOLE AND TRIMETHOPRIM [Concomitant]
  8. NAVOBAN [Concomitant]
  9. CANDESARTAN CILEXETIL [Concomitant]
  10. AMLODIN OD [Concomitant]
  11. BASEN OD [Concomitant]
  12. NOVOLIN 30R (INSULIN HUMAN (GENETICAL RECOMBINATION)) [Concomitant]

REACTIONS (7)
  - HEMIPLEGIA [None]
  - PERFORMANCE STATUS DECREASED [None]
  - ANAEMIA [None]
  - CHOLECYSTITIS ACUTE [None]
  - PLATELET COUNT DECREASED [None]
  - SUBDURAL HAEMATOMA [None]
  - CONVULSION [None]
